FAERS Safety Report 22627320 (Version 2)
Quarter: 2023Q2

REPORT INFORMATION
  Report Type: Spontaneous
  Country: US (occurrence: US)
  Receive Date: 20230622
  Receipt Date: 20230623
  Transmission Date: 20230722
  Serious: No
  Sender: FDA-Public Use
  Company Number: US-ABBVIE-5299620

PATIENT
  Sex: Female

DRUGS (2)
  1. QULIPTA [Suspect]
     Active Substance: ATOGEPANT
     Indication: Vestibular migraine
     Dosage: FORM STRENGTH: 10 MILLIGRAM
     Route: 048
     Dates: start: 2022, end: 2022
  2. NURTEC ODT [Suspect]
     Active Substance: RIMEGEPANT SULFATE
     Indication: Product used for unknown indication
     Route: 065

REACTIONS (6)
  - Agitation [Recovered/Resolved]
  - Poor quality sleep [Recovered/Resolved]
  - Dizziness [Recovering/Resolving]
  - Tremor [Recovered/Resolved]
  - Nausea [Recovering/Resolving]
  - Off label use [Unknown]

NARRATIVE: CASE EVENT DATE: 20220101
